FAERS Safety Report 6685771-6 (Version None)
Quarter: 2010Q2

REPORT INFORMATION
  Report Type: 
  Country: None (occurrence: None)
  Receive Date: 20100419
  Receipt Date: 20100408
  Transmission Date: 20101027
  Serious: Yes (Hospitalization)
  Sender: FDA-Public Use
  Company Number: FR-JNJFOC-20100401894

PATIENT
  Age: 10 Year
  Sex: Male

DRUGS (8)
  1. TOPIRAMATE [Suspect]
     Indication: EPILEPSY
  2. VALPROATE SODIUM [Suspect]
     Indication: EPILEPSY
  3. VALPROATE SODIUM [Suspect]
     Dosage: 100MG AM/300MG
  4. LAMOTRIGINE [Suspect]
     Indication: EPILEPSY
  5. OXCARBAZEPINE [Suspect]
     Indication: EPILEPSY
     Dosage: 420 MG AM 420 MG NOCTE
  6. OXCARBAZEPINE [Suspect]
     Dosage: 540 MG AM 510 MG NOCTE
  7. OXCARBAZEPINE [Suspect]
     Dosage: 540 MG AM 510 MG NOCTE
  8. CLARITHROMYCIN [Suspect]
     Indication: RESPIRATORY TRACT INFECTION

REACTIONS (10)
  - ATAXIA [None]
  - DIZZINESS [None]
  - DRUG INEFFECTIVE [None]
  - GAIT DISTURBANCE [None]
  - HYPERKINESIA [None]
  - HYPOCALCAEMIA [None]
  - NYSTAGMUS [None]
  - SOMNOLENCE [None]
  - UNRESPONSIVE TO STIMULI [None]
  - VOMITING [None]
